FAERS Safety Report 18600832 (Version 3)
Quarter: 2021Q1

REPORT INFORMATION
  Report Type: Spontaneous
  Country: US (occurrence: US)
  Receive Date: 20201210
  Receipt Date: 20210113
  Transmission Date: 20210419
  Serious: No
  Sender: FDA-Public Use
  Company Number: US-SA-2020SA349816

PATIENT
  Age: 59 Year
  Sex: Female

DRUGS (2)
  1. ENOXAPARIN SODIUM ? WINTHROP [Suspect]
     Active Substance: ENOXAPARIN SODIUM
     Indication: THROMBOSIS
     Dosage: 40 MG, QD
     Route: 065
  2. VITAMIN B [VITAMIN B NOS] [Concomitant]
     Dosage: UNK

REACTIONS (8)
  - Injection site discolouration [Unknown]
  - Patient dissatisfaction with device [Unknown]
  - Product packaging difficult to open [Unknown]
  - Drug delivery system issue [Unknown]
  - Incorrect dose administered [Unknown]
  - Injury associated with device [Unknown]
  - Injection site pain [Unknown]
  - Needle issue [Unknown]
